FAERS Safety Report 6750804-5 (Version None)
Quarter: 2010Q2

REPORT INFORMATION
  Report Type: 
  Country: None (occurrence: None)
  Receive Date: 20100602
  Receipt Date: 20100526
  Transmission Date: 20101027
  Serious: Yes (Death)
  Sender: FDA-Public Use
  Company Number: FR-WYE-G06181010

PATIENT
  Sex: Female

DRUGS (1)
  1. TORISEL [Suspect]
     Indication: RENAL CANCER METASTATIC
     Dosage: 25 MG
     Route: 042
     Dates: start: 20091119, end: 20091119

REACTIONS (1)
  - GASTROINTESTINAL HAEMORRHAGE [None]
